FAERS Safety Report 11220767 (Version 1)
Quarter: 2015Q2

REPORT INFORMATION
  Report Type: Report from Study
  Country: CA (occurrence: CA)
  Receive Date: 20150626
  Receipt Date: 20150626
  Transmission Date: 20150821
  Serious: Yes (Hospitalization, Other)
  Sender: FDA-Public Use
  Company Number: CA-ABBVIE-14K-028-1316636-00

PATIENT
  Sex: Male

DRUGS (2)
  1. HUMIRA [Suspect]
     Active Substance: ADALIMUMAB
     Indication: HIDRADENITIS
     Route: 058
     Dates: start: 20141111, end: 20141203
  2. HUMIRA [Suspect]
     Active Substance: ADALIMUMAB
     Route: 058
     Dates: start: 20141210

REACTIONS (10)
  - Hepatic steatosis [Unknown]
  - Pruritus [Unknown]
  - Pneumonia [Recovered/Resolved]
  - Synovial cyst [Unknown]
  - Sepsis [Unknown]
  - Bacterial sepsis [Recovered/Resolved]
  - Immunodeficiency [Unknown]
  - Lung infection [Unknown]
  - Confusional state [Recovered/Resolved]
  - Emphysema [Unknown]

NARRATIVE: CASE EVENT DATE: 2014
